FAERS Safety Report 4644415-5 (Version None)
Quarter: 2005Q2

REPORT INFORMATION
  Report Type: 
  Country: None (occurrence: None)
  Receive Date: 20050331
  Receipt Date: 20041208
  Transmission Date: 20051028
  Serious: No
  Sender: FDA-Public Use
  Company Number: 04P-163-0282713-00

PATIENT
  Age: 67 Year
  Sex: Female
  Weight: 90.7194 kg

DRUGS (8)
  1. HUMIRA [Suspect]
     Indication: RHEUMATOID ARTHRITIS
     Dosage: 40 MG, 1 IN 2 WK, SUBCUTANEOUS
     Route: 058
     Dates: start: 20030101
  2. NAPROXEN [Concomitant]
  3. SULFASALAZINE [Concomitant]
  4. PROPOXY/N/APAP [Concomitant]
  5. HYDROXYCHLOROQUINE SULFATE [Concomitant]
  6. FUROSEMIDE [Concomitant]
  7. PREDNISONE [Concomitant]
  8. METHOTREXATE [Concomitant]

REACTIONS (1)
  - PROCEDURAL COMPLICATION [None]
